FAERS Safety Report 18540682 (Version 1)
Quarter: 2020Q4

REPORT INFORMATION
  Report Type: Spontaneous
  Country: US (occurrence: US)
  Receive Date: 20201124
  Receipt Date: 20201124
  Transmission Date: 20210114
  Serious: Yes (Other)
  Sender: FDA-Public Use
  Company Number: US-MYLANLABS-2020M1096718

PATIENT
  Age: 33 Year
  Sex: Female
  Weight: 68.49 kg

DRUGS (6)
  1. CLOZAPINE. [Interacting]
     Active Substance: CLOZAPINE
     Dosage: 850 MILLIGRAM, QD,AFTER END OF TRIAL..
     Route: 065
  2. CLOZAPINE. [Suspect]
     Active Substance: CLOZAPINE
     Indication: SCHIZOPHRENIA
     Dosage: 50 MILLIGRAM, QD, DAY 1-8
     Route: 065
  3. CLOZAPINE. [Interacting]
     Active Substance: CLOZAPINE
     Dosage: 250 MILLIGRAM, QD, DAY 15-22
     Route: 065
  4. CLOZAPINE. [Interacting]
     Active Substance: CLOZAPINE
     Dosage: 300 MILLIGRAM, QD, DAY 22 ONWARDS
     Route: 065
  5. ETHINYLESTRADIOL W/NORETHISTERONE [Interacting]
     Active Substance: ETHINYL ESTRADIOL\NORETHINDRONE
     Indication: ORAL CONTRACEPTION
     Dosage: UNK
     Route: 048
  6. CLOZAPINE. [Interacting]
     Active Substance: CLOZAPINE
     Dosage: 150 MILLIGRAM, QD, DAY 8-15
     Route: 065

REACTIONS (4)
  - Antipsychotic drug level increased [Unknown]
  - Drug interaction [Unknown]
  - Constipation [Unknown]
  - Pyrexia [Unknown]
